FAERS Safety Report 9444652 (Version 2)
Quarter: 2013Q3

REPORT INFORMATION
  Report Type: Spontaneous
  Country: PE (occurrence: PE)
  Receive Date: 20130807
  Receipt Date: 20130910
  Transmission Date: 20140515
  Serious: Yes (Death, Other)
  Sender: FDA-Public Use
  Company Number: PE-PFIZER INC-2013228920

PATIENT
  Age: 71 Year
  Sex: Male

DRUGS (1)
  1. PRISTIQ [Suspect]
     Dosage: UNK
     Route: 048

REACTIONS (1)
  - Pancreatic carcinoma [Fatal]
